FAERS Safety Report 11334670 (Version 1)
Quarter: 2015Q3

REPORT INFORMATION
  Report Type: Spontaneous
  Country: US (occurrence: US)
  Receive Date: 20150804
  Receipt Date: 20150804
  Transmission Date: 20151125
  Serious: No
  Sender: FDA-Public Use
  Company Number: US-ASTRAZENECA-2015SE71985

PATIENT
  Age: 795 Month
  Sex: Female
  Weight: 113.4 kg

DRUGS (18)
  1. WELCHOL [Concomitant]
     Active Substance: COLESEVELAM HYDROCHLORIDE
     Indication: BLOOD CHOLESTEROL INCREASED
     Route: 048
  2. FENOFIBRATE. [Concomitant]
     Active Substance: FENOFIBRATE
     Indication: BLOOD TRIGLYCERIDES INCREASED
     Route: 048
  3. AMLODIPINE [Concomitant]
     Active Substance: AMLODIPINE BESYLATE
     Indication: HYPERTENSION
     Route: 048
  4. ASPIRIN. [Concomitant]
     Active Substance: ASPIRIN
     Indication: CARDIAC DISORDER
     Route: 048
  5. RESTASIA [Concomitant]
     Route: 047
  6. PROVENTIL [Concomitant]
     Active Substance: ALBUTEROL
     Indication: CHRONIC OBSTRUCTIVE PULMONARY DISEASE
     Route: 007
  7. LABETOLOL [Concomitant]
     Active Substance: LABETALOL HYDROCHLORIDE
     Indication: HYPERTENSION
     Route: 048
  8. MUPIROCIN. [Concomitant]
     Active Substance: MUPIROCIN
     Route: 061
  9. BYDUREON [Suspect]
     Active Substance: EXENATIDE
     Indication: TYPE 2 DIABETES MELLITUS
     Route: 058
     Dates: start: 201504
  10. NOVOLOG, INSULIN [Concomitant]
     Indication: TYPE 2 DIABETES MELLITUS
     Dosage: AS REQUIRED
     Route: 058
  11. ZETIA [Concomitant]
     Active Substance: EZETIMIBE
     Indication: BLOOD CHOLESTEROL INCREASED
     Route: 048
  12. PRIMIDONE. [Concomitant]
     Active Substance: PRIMIDONE
     Route: 048
  13. ALBUTEROL. [Concomitant]
     Active Substance: ALBUTEROL
     Indication: CHRONIC OBSTRUCTIVE PULMONARY DISEASE
     Dosage: AS REQUIRED
     Route: 002
  14. LANTUS, INSULIN [Concomitant]
     Indication: TYPE 2 DIABETES MELLITUS
     Route: 058
  15. DULOXETINE. [Concomitant]
     Active Substance: DULOXETINE
     Route: 048
  16. BLINDED STUDY DRUG [Concomitant]
     Active Substance: INVESTIGATIONAL PRODUCT
     Indication: ARTHRITIS
     Dosage: DAILY
     Route: 048
  17. NEXIUM [Suspect]
     Active Substance: ESOMEPRAZOLE MAGNESIUM
     Indication: GASTROOESOPHAGEAL REFLUX DISEASE
     Route: 048
  18. FLUTICASONE PROTIONATE [Concomitant]
     Route: 045

REACTIONS (7)
  - Diarrhoea [Unknown]
  - Constipation [Unknown]
  - Intentional product misuse [Unknown]
  - Blood glucose increased [Unknown]
  - Product quality issue [Unknown]
  - Abdominal pain [Unknown]
  - Underdose [Unknown]

NARRATIVE: CASE EVENT DATE: 201504
